FAERS Safety Report 6796326-7 (Version None)
Quarter: 2010Q2

REPORT INFORMATION
  Report Type: 
  Country: None (occurrence: None)
  Receive Date: 20100622
  Receipt Date: 20100608
  Transmission Date: 20101027
  Serious: Yes (Hospitalization)
  Sender: FDA-Public Use
  Company Number: DSJ-2010-09536

PATIENT
  Age: 68 Year
  Sex: Female

DRUGS (5)
  1. AMLODIPINE BESYLATE AND OLMESARTAN MEDOXOMIL [Suspect]
     Indication: HYPERTENSION
     Dosage: 20/5 MG (1 IN 1 D), PER ORAL
     Route: 048
     Dates: start: 20080715
  2. ATENOLOL [Concomitant]
  3. BRIMONIDINE TARTRATE/TIMOLOL MALEATE [Concomitant]
  4. BIMATOPROST [Concomitant]
  5. LOVAZA [Suspect]

REACTIONS (1)
  - CHOLELITHIASIS [None]
